FAERS Safety Report 9969951 (Version 6)
Quarter: 2014Q3

REPORT INFORMATION
  Report Type: Report from Study
  Country: CA (occurrence: CA)
  Receive Date: 20140306
  Receipt Date: 20140709
  Transmission Date: 20150326
  Serious: Yes (Death, Hospitalization)
  Sender: FDA-Public Use
  Company Number: CA-CELGENEUS-028-C5013-14013978

PATIENT
  Age: 71 Year
  Sex: Male
  Weight: 89.7 kg

DRUGS (79)
  1. NAPROXEN SODIUM. [Concomitant]
     Active Substance: NAPROXEN SODIUM
     Indication: PYREXIA
     Dosage: 500 MILLIGRAM
     Route: 048
     Dates: start: 20140205, end: 20140214
  2. BENADRYL [Concomitant]
     Active Substance: DIPHENHYDRAMINE HYDROCHLORIDE
     Dosage: 100 MILLIGRAM
     Route: 048
     Dates: start: 20140115
  3. MAGNESIUM OXIDE. [Concomitant]
     Active Substance: MAGNESIUM OXIDE
     Dosage: 420 MILLIGRAM
     Route: 048
     Dates: start: 20131224, end: 20140109
  4. GRAVOL [Concomitant]
     Active Substance: DIMENHYDRINATE
     Indication: VOMITING
     Dosage: 25-50MG
     Route: 048
     Dates: start: 20131229, end: 20140109
  5. LORAZEPAM. [Concomitant]
     Active Substance: LORAZEPAM
     Indication: ANXIETY
     Dosage: 0.5-1MG
     Route: 048
     Dates: start: 20131229, end: 20140109
  6. LORAZEPAM. [Concomitant]
     Active Substance: LORAZEPAM
     Indication: PALLIATIVE CARE
     Dosage: 0.5-1MG
     Route: 058
     Dates: start: 20140220
  7. COLACE [Concomitant]
     Active Substance: DOCUSATE SODIUM
     Indication: CONSTIPATION
     Dosage: 100 MILLIGRAM
     Route: 048
     Dates: start: 20140115, end: 20140122
  8. PREDNISONE. [Concomitant]
     Active Substance: PREDNISONE
     Dosage: 5 MILLIGRAM
     Route: 048
     Dates: start: 20140121, end: 20140123
  9. PREDNISONE. [Concomitant]
     Active Substance: PREDNISONE
     Dosage: 5 MILLIGRAM
     Route: 048
     Dates: start: 20140124, end: 20140125
  10. PEGYLATED INTERFERON ALPHA NOS [Concomitant]
     Active Substance: PEGINTERFERON ALFA-2A OR PEGINTERFERON ALFA-2B
     Indication: CONSTIPATION
     Dosage: 17 GRAM
     Route: 048
     Dates: start: 20140123, end: 20140220
  11. TYLENOL [Concomitant]
     Active Substance: ACETAMINOPHEN
     Dosage: 650-975MG
     Route: 048
     Dates: start: 20131228, end: 20140109
  12. TAMIFLU [Concomitant]
     Active Substance: OSELTAMIVIR PHOSPHATE
     Indication: PROPHYLAXIS
     Dosage: 150 MILLIGRAM
     Route: 048
     Dates: start: 20140127, end: 20140206
  13. VITAMIN K [Concomitant]
     Active Substance: PHYTONADIONE
     Indication: ACTIVATED PARTIAL THROMBOPLASTIN TIME PROLONGED
     Dosage: 10 MILLIGRAM
     Route: 048
     Dates: start: 20140214, end: 20140214
  14. MEROPENEM. [Concomitant]
     Active Substance: MEROPENEM
     Indication: PNEUMONIA
     Dosage: 2000 MILLIGRAM
     Route: 041
     Dates: start: 20140217, end: 20140218
  15. ONDANSETRON [Concomitant]
     Active Substance: ONDANSETRON
     Dosage: 24 MILLIGRAM
     Route: 041
     Dates: start: 20140122, end: 20140122
  16. LEVOFLOXACIN [Concomitant]
     Active Substance: LEVOFLOXACIN
     Indication: PNEUMONIA
     Dosage: 500 MILLIGRAM
     Route: 048
     Dates: start: 20131224, end: 20131225
  17. MAGNESIUM OXIDE. [Concomitant]
     Active Substance: MAGNESIUM OXIDE
     Dosage: 840 MILLIGRAM
     Route: 048
     Dates: start: 20140218, end: 20140220
  18. AVALIDE [Concomitant]
     Active Substance: HYDROCHLOROTHIAZIDE\IRBESARTAN
     Indication: HYPERTENSION
     Dosage: 12.5 PER 150MG
     Route: 048
     Dates: start: 2007, end: 20131126
  19. DILAUDID [Concomitant]
     Active Substance: HYDROMORPHONE HYDROCHLORIDE
     Indication: ARTHRITIS
     Dosage: 12 MILLIGRAM
     Route: 065
     Dates: start: 20140120, end: 20140125
  20. AMOXICILLIN-CLAVULANATE [Concomitant]
     Active Substance: AMOXICILLIN\CLAVULANIC ACID
     Dosage: 1750 MILLIGRAM
     Route: 048
     Dates: start: 20131213, end: 20131213
  21. AMOXICILLIN-CLAVULANATE [Concomitant]
     Active Substance: AMOXICILLIN\CLAVULANIC ACID
     Dosage: 875 MILLIGRAM
     Route: 048
     Dates: start: 20140124, end: 20140125
  22. METOPROLOL [Concomitant]
     Active Substance: METOPROLOL
     Indication: ATRIAL FLUTTER
     Dosage: 25 MILLIGRAM
     Route: 048
     Dates: start: 20140217, end: 20140218
  23. VALTREX [Concomitant]
     Active Substance: VALACYCLOVIR HYDROCHLORIDE
     Indication: HERPES SIMPLEX
     Dosage: 1000 MILLIGRAM
     Route: 065
     Dates: start: 20140204, end: 20140208
  24. MIDAZOLAM [Concomitant]
     Active Substance: MIDAZOLAM\MIDAZOLAM HYDROCHLORIDE
     Indication: PROPHYLAXIS
     Dosage: 2.5-5MG
     Route: 058
     Dates: start: 20140220
  25. PLATELET TRANSFUSION [Concomitant]
     Indication: HAEMORRHAGE
     Route: 065
  26. DIMENHYDRINATE. [Concomitant]
     Active Substance: DIMENHYDRINATE
     Indication: NAUSEA
  27. NAPROSYN [Concomitant]
     Active Substance: NAPROXEN
     Indication: OSTEOMYELITIS
     Dosage: 500 MILLIGRAM
     Route: 048
     Dates: start: 20140205, end: 20140214
  28. COLCHICINE. [Concomitant]
     Active Substance: COLCHICINE
     Indication: GOUT
     Dosage: .6 MILLIGRAM
     Route: 048
     Dates: start: 20131125, end: 20140117
  29. ONDANSETRON [Concomitant]
     Active Substance: ONDANSETRON
     Indication: NAUSEA
     Route: 048
     Dates: start: 20131129, end: 20131205
  30. GLYCOPYRROLATE. [Concomitant]
     Active Substance: GLYCOPYRROLATE
     Indication: GASTRIC DISORDER
     Dosage: 0.2-0.4MG
     Route: 058
     Dates: start: 20140221
  31. AZACITIDINE INJECTABLE [Suspect]
     Active Substance: AZACITIDINE
     Indication: ACUTE MYELOID LEUKAEMIA
     Dosage: 75 MILLIGRAM/SQ. METER
     Route: 058
     Dates: start: 20131129
  32. VOLTAREN [Concomitant]
     Active Substance: DICLOFENAC SODIUM
     Indication: POLYARTHRITIS
     Dosage: 4.64 PERCENT
     Route: 061
     Dates: start: 20140125, end: 20140206
  33. ONDANSETRON [Concomitant]
     Active Substance: ONDANSETRON
     Dosage: 24 MILLIGRAM
     Route: 048
     Dates: start: 20131209, end: 20140109
  34. BENADRYL [Concomitant]
     Active Substance: DIPHENHYDRAMINE HYDROCHLORIDE
     Indication: PRURITUS
     Route: 048
     Dates: start: 20131209, end: 20131213
  35. MAGNESIUM OXIDE. [Concomitant]
     Active Substance: MAGNESIUM OXIDE
     Indication: BLOOD MAGNESIUM DECREASED
     Dosage: 420 MILLIGRAM
     Route: 048
     Dates: start: 20131204, end: 20131223
  36. MAGNESIUM OXIDE. [Concomitant]
     Active Substance: MAGNESIUM OXIDE
     Dosage: 840 MILLIGRAM
     Route: 048
     Dates: start: 20140122
  37. OXAZEPAM. [Concomitant]
     Active Substance: OXAZEPAM
     Indication: PRODUCT USED FOR UNKNOWN INDICATION
     Dosage: 15-30MG
     Route: 048
     Dates: start: 20131229, end: 20140109
  38. ACETAMINOPHEN. [Concomitant]
     Active Substance: ACETAMINOPHEN
     Indication: PYREXIA
     Route: 048
     Dates: start: 20131125, end: 20131125
  39. TYLENOL [Concomitant]
     Active Substance: ACETAMINOPHEN
     Dosage: 2600 MILLIGRAM
     Route: 048
     Dates: start: 20140122, end: 20140123
  40. POTASSIUM [Concomitant]
     Active Substance: POTASSIUM
     Indication: BLOOD POTASSIUM DECREASED
     Route: 040
     Dates: start: 20140131, end: 20140131
  41. HALOPERIDOL. [Concomitant]
     Active Substance: HALOPERIDOL
     Indication: PROPHYLAXIS
     Dosage: 6 MILLIGRAM
     Route: 058
     Dates: start: 20140221
  42. CC-5013 [Suspect]
     Active Substance: LENALIDOMIDE
     Indication: ACUTE MYELOID LEUKAEMIA
     Dosage: 50 MILLIGRAM
     Route: 048
     Dates: start: 20131206, end: 20131226
  43. CC-5013 [Suspect]
     Active Substance: LENALIDOMIDE
     Dosage: 50 MILLIGRAM
     Route: 048
     Dates: start: 20140115, end: 20140129
  44. RED BLOOD CELLS [Concomitant]
     Active Substance: HUMAN RED BLOOD CELL
     Indication: HAEMOGLOBIN DECREASED
     Route: 041
     Dates: start: 20131210, end: 20131210
  45. ALLEGRA [Concomitant]
     Active Substance: FEXOFENADINE HYDROCHLORIDE
     Indication: PRURITUS
     Dosage: 4
     Route: 048
     Dates: start: 20131208, end: 20131209
  46. GRAVOL [Concomitant]
     Active Substance: DIMENHYDRINATE
     Dosage: 25-50MG
     Route: 041
     Dates: start: 20140123, end: 20140129
  47. DILAUDID [Concomitant]
     Active Substance: HYDROMORPHONE HYDROCHLORIDE
     Indication: OSTEOMYELITIS
     Dosage: 2-4MG
     Route: 048
     Dates: start: 20140125, end: 20140127
  48. SLOW K [Concomitant]
     Active Substance: POTASSIUM CHLORIDE
     Indication: BLOOD POTASSIUM DECREASED
     Route: 048
     Dates: start: 20140202, end: 20140218
  49. VITAMIN K [Concomitant]
     Active Substance: PHYTONADIONE
     Dosage: 10 MILLIGRAM
     Route: 048
     Dates: start: 20140215, end: 20140215
  50. VITAMIN K [Concomitant]
     Active Substance: PHYTONADIONE
     Dosage: 10 MILLIGRAM
     Route: 048
     Dates: start: 20140216, end: 20140216
  51. SCOPOLAMINE [Concomitant]
     Active Substance: SCOPOLAMINE
     Indication: INCREASED BRONCHIAL SECRETION
     Dosage: 0.4-0.6MG
     Route: 058
     Dates: start: 20140221
  52. AZACITIDINE INJECTABLE [Suspect]
     Active Substance: AZACITIDINE
     Dosage: 75 MILLIGRAM/SQ. METER
     Route: 058
     Dates: start: 20140108, end: 20140114
  53. NAPROSYN [Concomitant]
     Active Substance: NAPROXEN
     Indication: PYREXIA
     Route: 065
  54. VOLTAREN [Concomitant]
     Active Substance: DICLOFENAC SODIUM
     Indication: THROMBOPHLEBITIS
     Route: 065
     Dates: start: 20131125, end: 20140109
  55. SENOKOT [Concomitant]
     Active Substance: SENNOSIDES
     Indication: CONSTIPATION
     Dosage: 1 DOSAGE FORMS
     Route: 048
     Dates: start: 20140115
  56. PREDNISONE. [Concomitant]
     Active Substance: PREDNISONE
     Indication: POLYARTHRITIS
     Dosage: 20 MILLIGRAM
     Route: 048
     Dates: start: 20131127, end: 20131128
  57. ASA [Concomitant]
     Active Substance: ASPIRIN
     Indication: PROPHYLAXIS
     Dosage: 81 MILLIGRAM
     Route: 048
     Dates: start: 2007, end: 20131120
  58. TYLENOL [Concomitant]
     Active Substance: ACETAMINOPHEN
     Indication: PYREXIA
     Dosage: 325-650MG
     Route: 048
     Dates: start: 20131209, end: 20131213
  59. METOPROLOL [Concomitant]
     Active Substance: METOPROLOL
     Indication: HYPERTENSION
     Route: 048
     Dates: start: 20131125, end: 20131126
  60. METOPROLOL [Concomitant]
     Active Substance: METOPROLOL
     Route: 048
     Dates: start: 20140219, end: 20140219
  61. ATIVAN [Concomitant]
     Active Substance: LORAZEPAM
     Indication: PROPHYLAXIS
     Dosage: 0.5-1 MG
     Route: 048
     Dates: start: 20140219
  62. DIMENHYDRINATE. [Concomitant]
     Active Substance: DIMENHYDRINATE
     Indication: VOMITING
  63. CRESTOR [Concomitant]
     Active Substance: ROSUVASTATIN CALCIUM
     Indication: HYPERCHOLESTEROLAEMIA
     Dosage: 20 MILLIGRAM
     Route: 048
     Dates: start: 2003
  64. LEVOFLOXACIN [Concomitant]
     Active Substance: LEVOFLOXACIN
     Indication: FEBRILE NEUTROPENIA
     Dosage: 1750 MILLIGRAM
     Route: 048
     Dates: start: 20131217, end: 20131225
  65. LEVOFLOXACIN [Concomitant]
     Active Substance: LEVOFLOXACIN
     Indication: INFECTION
     Dosage: 500 MILLIGRAM
     Route: 048
     Dates: start: 20131219, end: 20131224
  66. GRAVOL [Concomitant]
     Active Substance: DIMENHYDRINATE
     Indication: NAUSEA
     Dosage: 25-50MG
     Route: 041
     Dates: start: 20131229, end: 20140109
  67. CODEINE [Concomitant]
     Active Substance: CODEINE
     Indication: PAIN
     Dosage: 30-60MG
     Route: 048
     Dates: start: 20140106, end: 20140109
  68. PREDNISONE. [Concomitant]
     Active Substance: PREDNISONE
     Indication: GOUT
     Dosage: 10 MILLIGRAM
     Route: 048
     Dates: start: 20140112, end: 20140120
  69. TYLENOL [Concomitant]
     Active Substance: ACETAMINOPHEN
     Dosage: 325-650MG
     Route: 048
     Dates: start: 20140127, end: 20140203
  70. LACTULOSE. [Concomitant]
     Active Substance: LACTULOSE
     Indication: CONSTIPATION
     Dosage: 30 MILLILITER
     Route: 048
     Dates: start: 20140129, end: 20140131
  71. MORPHINE [Concomitant]
     Active Substance: MORPHINE
     Indication: DYSPNOEA
     Dosage: 1-5MG
     Route: 058
     Dates: start: 20140220
  72. VOLTAREN [Concomitant]
     Active Substance: DICLOFENAC SODIUM
     Indication: GOUT
     Dosage: 2-4G
     Route: 065
     Dates: start: 20140101, end: 20140103
  73. LEVOFLOXACIN [Concomitant]
     Active Substance: LEVOFLOXACIN
     Dosage: 500 MILLIGRAM
     Route: 048
     Dates: start: 20140218, end: 20140218
  74. DEPO-MEDROL [Concomitant]
     Active Substance: METHYLPREDNISOLONE ACETATE
     Indication: LOCALISED INFECTION
     Dosage: 320 MILLIGRAM
     Route: 041
     Dates: start: 20140107, end: 20140107
  75. CODEINE [Concomitant]
     Active Substance: CODEINE
     Dosage: 180 MILLIGRAM
     Route: 048
     Dates: start: 20140115, end: 20140117
  76. AMOXICILLIN-CLAVULANATE [Concomitant]
     Active Substance: AMOXICILLIN\CLAVULANIC ACID
     Indication: FEBRILE NEUTROPENIA
     Dosage: 1500 MILLIGRAM
     Route: 048
     Dates: start: 20131126, end: 20131130
  77. ASA [Concomitant]
     Active Substance: ASPIRIN
     Indication: HYPERTENSION
     Route: 065
  78. VITAMIN K [Concomitant]
     Active Substance: PHYTONADIONE
     Indication: INTERNATIONAL NORMALISED RATIO INCREASED
     Route: 048
     Dates: start: 20140206, end: 20140206
  79. DIMENHYDRINATE. [Concomitant]
     Active Substance: DIMENHYDRINATE
     Indication: PROPHYLAXIS
     Dosage: 25-50MG
     Route: 048
     Dates: start: 20131231, end: 20140109

REACTIONS (3)
  - Osteomyelitis [Not Recovered/Not Resolved]
  - Haemorrhage intracranial [Fatal]
  - Febrile neutropenia [Not Recovered/Not Resolved]

NARRATIVE: CASE EVENT DATE: 20140122
